FAERS Safety Report 20814664 (Version 4)
Quarter: 2022Q3

REPORT INFORMATION
  Report Type: Spontaneous
  Country: GB (occurrence: GB)
  Receive Date: 20220511
  Receipt Date: 20220812
  Transmission Date: 20221027
  Serious: Yes (Hospitalization, Other)
  Sender: FDA-Public Use
  Company Number: None

PATIENT
  Age: 10 Year
  Sex: Female

DRUGS (17)
  1. LINEZOLID [Suspect]
     Active Substance: LINEZOLID
     Dosage: 300 MG, 3X/DAY
     Route: 065
     Dates: end: 20220429
  2. ELEXACAFTOR\IVACAFTOR\TEZACAFTOR [Suspect]
     Active Substance: ELEXACAFTOR\IVACAFTOR\TEZACAFTOR
     Indication: Cystic fibrosis
     Dosage: 75MG/50MG/100MG, MANUFACTURER: VERTEX PHARMACEUTICALS (UK) LIMITED.
     Route: 048
     Dates: end: 20220429
  3. KALYDECO [Suspect]
     Active Substance: IVACAFTOR
     Indication: Cystic fibrosis
     Route: 048
  4. OMEPRAZOLE [Suspect]
     Active Substance: OMEPRAZOLE
     Dosage: 20 MG, 2X/DAY
  5. AMIKACIN [Concomitant]
     Active Substance: AMIKACIN
     Dosage: 500 MG, 2X/DAY NEBULISED
  6. BEDAQUILINE [Concomitant]
     Active Substance: BEDAQUILINE
     Dosage: 200 MG, 3 TIMES A WEEK
  7. BECLOMETHASONE DIPROPIONATE [Concomitant]
     Active Substance: BECLOMETHASONE DIPROPIONATE
     Dosage: 100 UG, 2X/DAY PUFFS. VIA SPACER
     Route: 055
  8. CHOLECALCIFEROL [Concomitant]
     Active Substance: CHOLECALCIFEROL
     Dosage: 2 DF, 1X/DAY WITH MEALS AND SNACKS AS DIRECTED BY DIETICIAN
     Route: 048
  9. CREON [Concomitant]
     Active Substance: PANCRELIPASE AMYLASE\PANCRELIPASE LIPASE\PANCRELIPASE PROTEASE
     Dosage: WITH MEALS AND SNACKS AS DIRECTED BY DIETICIAN.
     Route: 048
  10. CYPROHEPTADINE [Concomitant]
     Active Substance: CYPROHEPTADINE
     Dosage: 2 MG, 1X/DAY 4MG
     Route: 048
  11. CHOLECALCIFEROL [Concomitant]
     Active Substance: CHOLECALCIFEROL
     Dosage: 800 IU, 1X/DAY, AS DIRECTED BY DIABETES TEAM:ON MONDAYS, WEDNESDAYS AND FRIDAYS  MANUFACTURER: MYLAN
     Route: 048
  12. INSULIN ASPART [Concomitant]
     Active Substance: INSULIN ASPART
     Dosage: ON MONDAYS, WEDNESDAYS AND FRIDAYS
     Route: 058
  13. MENADIOL [Concomitant]
     Active Substance: MENADIOL
     Dosage: 10 MG, 1X/DAY ON MONDAYS, WEDNESDAYS AND FRIDAYS
     Route: 048
  14. PYRIDOXINE [Concomitant]
     Active Substance: PYRIDOXINE
     Dosage: 100 MG, 1X/DAY
  15. SODIUM CHLORIDE [Concomitant]
     Active Substance: SODIUM CHLORIDE
     Dosage: 1 DF, 2X/DAY PUFFS. PRIOR TO BEDTIME VIA MDI AND SPACER.
  16. ALBUTEROL [Concomitant]
     Active Substance: ALBUTEROL
     Dosage: 2 DF, 1X/DAY PUFFS. PRIOR TO BEDTIME VIA MDI AND SPACER
     Route: 055
  17. VITAMIN D3 [Concomitant]
     Active Substance: CHOLECALCIFEROL
     Dosage: 500 IU

REACTIONS (4)
  - Systemic lupus erythematosus [Unknown]
  - Butterfly rash [Unknown]
  - Off label use [Unknown]
  - Off label use [Unknown]
